FAERS Safety Report 4491624-4 (Version None)
Quarter: 2004Q4

REPORT INFORMATION
  Report Type: 
  Country: None (occurrence: None)
  Receive Date: 20041101
  Receipt Date: 20041019
  Transmission Date: 20050328
  Serious: Yes (Death, Life-Threatening, Hospitalization, Other)
  Sender: FDA-Public Use
  Company Number: 9512700

PATIENT
  Age: 51 Year
  Sex: Male
  Weight: 63.5 kg

DRUGS (8)
  1. VORICONAZOLE (VORICONAZOLE) [Suspect]
     Indication: ASPERGILLOSIS
     Dosage: 360 MG (2 IN 1 D), INTRAVENOUS
     Route: 042
     Dates: start: 19951115, end: 19951119
  2. DICLOFENAC SODIUM [Concomitant]
  3. CODEINE PHOSPHATE AND ACETAMINOPHEN [Concomitant]
  4. DOTHIEPIN HYDROCHLORIDE [Concomitant]
  5. TAMAZEPAM (TEMAZEPAM) [Concomitant]
  6. DIHYDROCODEINE (DIHYDROCODEINE) [Concomitant]
  7. MEPERIDINE HCL [Concomitant]
  8. METOCLOPRAMIDE [Concomitant]

REACTIONS (33)
  - ACUTE RESPIRATORY DISTRESS SYNDROME [None]
  - ASPIRATION [None]
  - BLOOD ALBUMIN DECREASED [None]
  - CIRRHOSIS ALCOHOLIC [None]
  - CONFUSIONAL STATE [None]
  - DISSEMINATED INTRAVASCULAR COAGULATION [None]
  - DRUG LEVEL CHANGED [None]
  - DRUG LEVEL INCREASED [None]
  - DRUG TOXICITY [None]
  - EYE REDNESS [None]
  - EYE SWELLING [None]
  - FEELING DRUNK [None]
  - GENERAL PHYSICAL HEALTH DETERIORATION [None]
  - HEPATIC CIRRHOSIS [None]
  - HEPATIC FAILURE [None]
  - HEPATIC STEATOSIS [None]
  - HEPATOSPLENOMEGALY [None]
  - HYPOGLYCAEMIA [None]
  - HYPOPERFUSION [None]
  - HYPOTENSION [None]
  - HYPOXIA [None]
  - LABORATORY TEST ABNORMAL [None]
  - LIVER DISORDER [None]
  - LUNG INFILTRATION [None]
  - LYMPHOPENIA [None]
  - PERITONEAL HAEMORRHAGE [None]
  - POST PROCEDURAL HAEMORRHAGE [None]
  - RENAL FAILURE [None]
  - SEPSIS [None]
  - SHOCK [None]
  - SPLEEN CONGESTION [None]
  - SWELLING FACE [None]
  - TACHYCARDIA [None]
